FAERS Safety Report 17000305 (Version 2)
Quarter: 2019Q4

REPORT INFORMATION
  Report Type: Spontaneous
  Country: US (occurrence: US)
  Receive Date: 20191106
  Receipt Date: 20191218
  Transmission Date: 20200122
  Serious: Yes (Death, Hospitalization, Other)
  Sender: FDA-Public Use
  Company Number: US-PFIZER INC-2019343164

PATIENT
  Age: 81 Year
  Sex: Male
  Weight: 72.56 kg

DRUGS (3)
  1. REVATIO [Suspect]
     Active Substance: SILDENAFIL CITRATE
     Dosage: 120 MG, 1X/DAY
  2. ALLOPURINOL. [Concomitant]
     Active Substance: ALLOPURINOL
     Indication: GOUT
     Dosage: 300 MG, UNK
  3. REVATIO [Suspect]
     Active Substance: SILDENAFIL CITRATE
     Indication: PULMONARY ARTERIAL HYPERTENSION
     Dosage: 40 MG, 2X/DAY (2 PILLS A DAY WHICH IS 40 MG)
     Dates: start: 20190620

REACTIONS (7)
  - Sepsis [Unknown]
  - Off label use [Unknown]
  - Renal failure [Unknown]
  - Cardiac failure [Fatal]
  - Arrhythmia [Unknown]
  - Urinary retention [Unknown]
  - Product use issue [Unknown]
